FAERS Safety Report 20662357 (Version 1)
Quarter: 2022Q2

REPORT INFORMATION
  Report Type: Spontaneous
  Country: US (occurrence: US)
  Receive Date: 20220401
  Receipt Date: 20220401
  Transmission Date: 20220720
  Serious: Yes (Life-Threatening, Disabling, Other)
  Sender: FDA-Public Use
  Company Number: US-Accord-258466

PATIENT
  Age: 62 Year
  Sex: Female
  Weight: 51.3 kg

DRUGS (2)
  1. ANASTROZOLE [Suspect]
     Active Substance: ANASTROZOLE
     Indication: Breast cancer
     Dosage: STRENGTH: 1 MG
     Route: 048
     Dates: start: 201803
  2. SYNTHROID [Concomitant]
     Active Substance: LEVOTHYROXINE SODIUM
     Indication: Product used for unknown indication

REACTIONS (22)
  - Nausea [Not Recovered/Not Resolved]
  - Weight decreased [Not Recovered/Not Resolved]
  - Vitamin B12 decreased [Unknown]
  - Alopecia [Unknown]
  - Onychoclasis [Unknown]
  - Fatigue [Unknown]
  - Dehydration [Unknown]
  - Dry eye [Unknown]
  - Cough [Unknown]
  - Pain [Unknown]
  - Muscle injury [Unknown]
  - Skeletal injury [Unknown]
  - Limb discomfort [Unknown]
  - Emotional disorder [Not Recovered/Not Resolved]
  - Feeling abnormal [Not Recovered/Not Resolved]
  - Helplessness [Not Recovered/Not Resolved]
  - Urine odour abnormal [Unknown]
  - Abnormal faeces [Unknown]
  - Skin odour abnormal [Unknown]
  - Dysgeusia [Unknown]
  - Blood thyroid stimulating hormone abnormal [Unknown]
  - Depression [Not Recovered/Not Resolved]

NARRATIVE: CASE EVENT DATE: 20180303
